FAERS Safety Report 7071637-9 (Version None)
Quarter: 2010Q4

REPORT INFORMATION
  Report Type: 
  Country: None (occurrence: None)
  Receive Date: 20101029
  Receipt Date: 20090930
  Transmission Date: 20110411
  Serious: No
  Sender: FDA-Public Use
  Company Number: A0809767A

PATIENT
  Age: 73 Year
  Sex: Male

DRUGS (4)
  1. ADVAIR DISKUS 100/50 [Suspect]
     Indication: ASTHMA
     Dosage: 1PUFF TWICE PER DAY
     Route: 055
     Dates: start: 20090930
  2. ALBUTEROL [Concomitant]
  3. CYMBALTA [Concomitant]
  4. WELLBUTRIN [Concomitant]

REACTIONS (2)
  - INCREASED APPETITE [None]
  - SOMNOLENCE [None]
